FAERS Safety Report 5469714-9 (Version None)
Quarter: 2007Q3

REPORT INFORMATION
  Report Type: 
  Country: None (occurrence: None)
  Receive Date: 20070926
  Receipt Date: 20070926
  Transmission Date: 20080115
  Serious: Yes (Hospitalization)
  Sender: FDA-Public Use
  Company Number: None

PATIENT
  Age: 66 Year
  Sex: Male

DRUGS (2)
  1. AMIODARONE HCL [Suspect]
     Indication: ATRIAL FLUTTER
     Dosage: 400MG TID PO
     Route: 048
     Dates: start: 20070912, end: 20070912
  2. AMIODARONE HCL [Suspect]
     Dosage: 900MG EVERY DAY IV
     Route: 042
     Dates: start: 20070913, end: 20070913

REACTIONS (1)
  - HEPATIC ENZYME INCREASED [None]
